FAERS Safety Report 21453958 (Version 2)
Quarter: 2024Q4

REPORT INFORMATION
  Report Type: Spontaneous
  Country: US (occurrence: US)
  Receive Date: 20221013
  Receipt Date: 20241219
  Transmission Date: 20250115
  Serious: No
  Sender: SANOFI AVENTIS
  Company Number: US-SA-SAC20221012001544

PATIENT
  Age: 27 Year
  Sex: Female
  Weight: 65.14 kg

DRUGS (1)
  1. DUPIXENT [Suspect]
     Active Substance: DUPILUMAB
     Indication: Nasal polyps
     Dosage: 300 MG, QOW
     Route: 058

REACTIONS (3)
  - Injection site swelling [Unknown]
  - Lack of injection site rotation [Unknown]
  - Maternal exposure during pregnancy [Unknown]
